FAERS Safety Report 23107528 (Version 1)
Quarter: 2023Q4

REPORT INFORMATION
  Report Type: Other
  Country: DE (occurrence: None)
  Receive Date: 20231026
  Receipt Date: 20231026
  Transmission Date: 20240109
  Serious: Yes (Other)
  Sender: FDA-Public Use
  Company Number: DE-ROCHE-3442936

PATIENT
  Age: 30 Year
  Sex: Male

DRUGS (7)
  1. TOCILIZUMAB [Suspect]
     Active Substance: TOCILIZUMAB
     Indication: COVID-19
     Route: 042
  2. LEVETIRACETAM [Concomitant]
     Active Substance: LEVETIRACETAM
  3. PROPOFOL [Concomitant]
     Active Substance: PROPOFOL
  4. MIDAZOLAM [Concomitant]
     Active Substance: MIDAZOLAM
  5. KETAMINE [Concomitant]
     Active Substance: KETAMINE
  6. METHYLPREDNISOLONE [Concomitant]
     Active Substance: METHYLPREDNISOLONE
  7. BARICITINIB [Concomitant]
     Active Substance: BARICITINIB

REACTIONS (1)
  - Disease progression [Unknown]
